FAERS Safety Report 19624913 (Version 2)
Quarter: 2021Q3

REPORT INFORMATION
  Report Type: Spontaneous
  Country: US (occurrence: US)
  Receive Date: 20210728
  Receipt Date: 20210728
  Transmission Date: 20211014
  Serious: No
  Sender: FDA-Public Use
  Company Number: US-009507513-2106USA007864

PATIENT
  Sex: Female

DRUGS (1)
  1. ALBUTEROL SULFATE. [Suspect]
     Active Substance: ALBUTEROL SULFATE
     Dosage: 108 MICROGRAM, PRN

REACTIONS (4)
  - Device malfunction [Unknown]
  - Circumstance or information capable of leading to device use error [Unknown]
  - Incorrect dose administered by device [Unknown]
  - Poor quality device used [Unknown]
